FAERS Safety Report 6108040-1 (Version None)
Quarter: 2009Q1

REPORT INFORMATION
  Report Type: 
  Country: None (occurrence: None)
  Receive Date: 20090309
  Receipt Date: 20090225
  Transmission Date: 20090719
  Serious: Yes (Death, Hospitalization, Other)
  Sender: FDA-Public Use
  Company Number: BR-ROCHE-617042

PATIENT
  Sex: Female

DRUGS (1)
  1. XELODA [Suspect]
     Indication: DRUG USE FOR UNKNOWN INDICATION
     Dosage: 14 DAYS PER CYCLE
     Route: 048
     Dates: start: 20081012

REACTIONS (9)
  - APTYALISM [None]
  - BLOOD ALBUMIN DECREASED [None]
  - BURN OF INTERNAL ORGANS [None]
  - DEATH [None]
  - DEHYDRATION [None]
  - FEEDING DISORDER [None]
  - ILL-DEFINED DISORDER [None]
  - THERMAL BURN [None]
  - VOMITING [None]
